FAERS Safety Report 8837022 (Version 8)
Quarter: 2013Q1

REPORT INFORMATION
  Report Type: Report from Study
  Country: NL (occurrence: NL)
  Receive Date: 20121011
  Receipt Date: 20130125
  Transmission Date: 20140127
  Serious: Yes (Hospitalization)
  Sender: FDA-Public Use
  Company Number: NL-009507513-1210NLD004272

PATIENT
  Age: 2 Year
  Sex: Female

DRUGS (28)
  1. BLINDED APREPITANT [Suspect]
     Indication: PROPHYLAXIS OF NAUSEA AND VOMITING
     Dosage: UNK
     Route: 048
     Dates: start: 20120919, end: 20120919
  2. BLINDED APREPITANT [Suspect]
     Indication: PROPHYLAXIS OF NAUSEA AND VOMITING
     Dosage: UNK
     Route: 048
     Dates: start: 20120919, end: 20120919
  3. BLINDED DEXAMETHASONE [Suspect]
     Indication: PROPHYLAXIS OF NAUSEA AND VOMITING
     Dosage: UNK
     Route: 048
     Dates: start: 20120919, end: 20120919
  4. BLINDED DEXAMETHASONE [Suspect]
     Indication: PROPHYLAXIS OF NAUSEA AND VOMITING
     Dosage: UNK
     Route: 048
     Dates: start: 20120919, end: 20120919
  5. BLINDED ONDANSETRON [Suspect]
     Indication: PROPHYLAXIS OF NAUSEA AND VOMITING
     Dosage: UNK
     Route: 048
     Dates: start: 20120919, end: 20120919
  6. BLINDED ONDANSETRON HCL [Suspect]
     Indication: PROPHYLAXIS OF NAUSEA AND VOMITING
     Dosage: UNK
     Route: 048
     Dates: start: 20120919, end: 20120919
  7. BLINDED PLACEBO [Suspect]
     Indication: PROPHYLAXIS OF NAUSEA AND VOMITING
     Dosage: UNK
     Route: 048
     Dates: start: 20120919, end: 20120919
  8. BLINDED POST TRIAL THERAPY [Suspect]
     Indication: PROPHYLAXIS OF NAUSEA AND VOMITING
     Dosage: UNK
     Route: 048
     Dates: start: 20120919, end: 20120919
  9. BLINDED PRE TRIAL THERAPY [Suspect]
     Indication: PROPHYLAXIS OF NAUSEA AND VOMITING
     Dosage: UNK
     Route: 048
     Dates: start: 20120919, end: 20120919
  10. BLINDED APREPITANT [Suspect]
     Dosage: UNK
     Route: 048
     Dates: start: 20120920, end: 20120921
  11. BLINDED APREPITANT [Suspect]
     Dosage: UNK
     Route: 048
     Dates: start: 20120920, end: 20120921
  12. BLINDED DEXAMETHASONE [Suspect]
     Dosage: UNK
     Route: 048
     Dates: start: 20120920, end: 20120921
  13. BLINDED DEXAMETHASONE [Suspect]
     Dosage: UNK
     Route: 048
     Dates: start: 20120920, end: 20120921
  14. BLINDED ONDANSETRON [Suspect]
     Dosage: UNK
     Route: 048
     Dates: start: 20120920, end: 20120921
  15. BLINDED ONDANSETRON HCL [Suspect]
     Dosage: UNK
     Route: 048
     Dates: start: 20120920, end: 20120921
  16. BLINDED PLACEBO [Suspect]
     Dosage: UNK
     Route: 048
     Dates: start: 20120920, end: 20120921
  17. BLINDED POST TRIAL THERAPY [Suspect]
     Dosage: UNK
     Route: 048
     Dates: start: 20120920, end: 20120921
  18. BLINDED PRE TRIAL THERAPY [Suspect]
     Dosage: UNK
     Route: 048
     Dates: start: 20120920, end: 20120921
  19. ONDANSETRON [Suspect]
     Indication: PROPHYLAXIS OF NAUSEA AND VOMITING
     Dosage: 3 MG, QPM
     Route: 042
     Dates: start: 20120919, end: 20120924
  20. ONDANSETRON [Suspect]
     Dosage: 3 MG, QAM
     Route: 042
     Dates: start: 20120920, end: 20120924
  21. DEXAMETHASONE [Concomitant]
     Indication: PROPHYLAXIS OF NAUSEA AND VOMITING
     Dosage: 50 ML, QAM
     Route: 042
     Dates: start: 20120920, end: 20120924
  22. DEXAMETHASONE [Concomitant]
     Dosage: 50 ML, QAM
     Route: 042
     Dates: start: 20120922, end: 20120922
  23. DEXAMETHASONE [Concomitant]
     Dosage: 50 ML, QPM
     Route: 042
     Dates: start: 20120919, end: 20120924
  24. VINDESINE [Suspect]
     Indication: CHEMOTHERAPY
     Dosage: 1.7 MG, QD
     Route: 042
     Dates: start: 20120919, end: 20120919
  25. CISPLATIN [Suspect]
     Indication: CHEMOTHERAPY
     Dosage: 23 MG, QD
     Route: 042
     Dates: start: 20120919, end: 20120923
  26. ETOPOSIDE [Suspect]
     Indication: CHEMOTHERAPY
     Dosage: 56 MG, QD
     Route: 042
     Dates: start: 20120919, end: 20120923
  27. DEXTROSE (+) POTASSIUM CHLORIDE (+) SODIUM CHLORIDE [Concomitant]
     Indication: BLOOD GLUCOSE
     Dosage: UNK ML, ONCE
     Route: 042
     Dates: start: 20120919, end: 20120920
  28. MANNITOL [Concomitant]
     Indication: DIURETIC THERAPY
     Dosage: UNK ML, ONCE
     Route: 042
     Dates: start: 20120919, end: 20120919

REACTIONS (2)
  - Device related infection [Recovered/Resolved]
  - Febrile neutropenia [Recovered/Resolved]
